FAERS Safety Report 5040001-6 (Version None)
Quarter: 2006Q2

REPORT INFORMATION
  Report Type: 
  Country: None (occurrence: None)
  Receive Date: 20060601
  Receipt Date: 20060106
  Transmission Date: 20061013
  Serious: No
  Sender: FDA-Public Use
  Company Number: 2006PV006710

PATIENT
  Age: 67 Year
  Sex: Female

DRUGS (7)
  1. BYETTA [Suspect]
     Indication: DRUG USE FOR UNKNOWN INDICATION
     Dosage: 5 MCG, BID, SC
     Route: 058
     Dates: start: 20050101
  2. METFORMIN [Concomitant]
  3. GLUCOVANCE [Concomitant]
  4. ZOCOR [Concomitant]
  5. ECOTRIN [Concomitant]
  6. SYNTHROID [Concomitant]
  7. PRINIVIL [Concomitant]

REACTIONS (1)
  - INJECTION SITE URTICARIA [None]
